FAERS Safety Report 19203970 (Version 2)
Quarter: 2021Q2

REPORT INFORMATION
  Report Type: Spontaneous
  Country: IT (occurrence: IT)
  Receive Date: 20210503
  Receipt Date: 20210521
  Transmission Date: 20210717
  Serious: Yes (Other)
  Sender: FDA-Public Use
  Company Number: IT-AUROBINDO-AUR-APL-2021-017745

PATIENT
  Age: 11 Year
  Sex: Male

DRUGS (12)
  1. METHOTREXATE. [Suspect]
     Active Substance: METHOTREXATE
     Indication: MEDULLOBLASTOMA
     Dosage: 12 MILLIGRAM (AT EVERY CYCLE, INTRATHECAL METHOTREXATE WAS ADMINISTERED)
     Route: 037
  2. METHOTREXATE. [Suspect]
     Active Substance: METHOTREXATE
     Dosage: 8 G/M2, RECEIVED 4 CYCLES OF PRE?IRRADIATION CHEMOTHERAPY
     Route: 042
  3. VINCRISTINE [Suspect]
     Active Substance: VINCRISTINE
     Dosage: 1.5 G/M2 ON DAY 1, RECEIVED 4 CYCLES OF PRE?IRRADIATION CHEMOTHERAPY
     Route: 065
  4. ETOPOSIDE. [Suspect]
     Active Substance: ETOPOSIDE
     Indication: RADIOSENSITISATION THERAPY
     Dosage: 25 MILLIGRAM/SQ. METER, ONCE A DAY (5 DAYS A WEEK FOR 6 WEEKS)
     Route: 048
  5. VINCRISTINE [Suspect]
     Active Substance: VINCRISTINE
     Indication: MEDULLOBLASTOMA
     Dosage: 1.5 MILLIGRAM/SQ. METER (ON DAY 8, RECEIVED 4 CYCLES OF PRE?IRRADIATION CHEMOTHERAPY)
     Route: 065
  6. THIOTEPA. [Concomitant]
     Active Substance: THIOTEPA
     Indication: MEDULLOBLASTOMA
     Dosage: 300 MILLIGRAM/SQ. METER (THIOTEPA ON DAYS 5, 4 AND 3)
     Route: 065
  7. ETOPOSIDE. [Suspect]
     Active Substance: ETOPOSIDE
     Dosage: 200 MILLIGRAM/SQ. METER (IN MOBILISING CYCLE ON DAYS 2, 3 AND 4)
     Route: 065
  8. TEMOZOLOMIDE. [Suspect]
     Active Substance: TEMOZOLOMIDE
     Indication: MEDULLOBLASTOMA RECURRENT
     Dosage: 180 MILLIGRAM/SQ. METER (5DAYS EVERY 23 DAYS, HE RECEIVED A TOTAL OF 10 CYCLES)
     Route: 065
  9. CYCLOPHOSPHAMIDE. [Suspect]
     Active Substance: CYCLOPHOSPHAMIDE
     Indication: MEDULLOBLASTOMA
     Dosage: CYCLOPHOSPHAMIDE IN MOBILISING CYCLE ON 4 G/M2 DAY 1 UNK
     Route: 065
  10. CYCLOPHOSPHAMIDE. [Suspect]
     Active Substance: CYCLOPHOSPHAMIDE
     Dosage: (4G/M2 (DAY1), MOBILIZING CYCLE)
     Route: 065
  11. ETOPOSIDE. [Suspect]
     Active Substance: ETOPOSIDE
     Indication: MEDULLOBLASTOMA
     Dosage: 150 MILLIGRAM/SQ. METER (ON DAYS 8 AND 9 (SECOND CYCLE)
     Route: 065
  12. CARBOPLATIN. [Suspect]
     Active Substance: CARBOPLATIN
     Indication: MEDULLOBLASTOMA
     Dosage: 600 MILLIGRAM/SQ. METER (ON DAY 8, RECEIVED 4 CYCLES OF PRE?IRRADIATION CHEMOTHERAPY)
     Route: 065

REACTIONS (9)
  - Oropharyngeal pain [Recovering/Resolving]
  - Abdominal pain [Recovering/Resolving]
  - Product used for unknown indication [Unknown]
  - Febrile neutropenia [Recovered/Resolved]
  - Agitation [Recovered/Resolved]
  - Fatigue [Unknown]
  - Trismus [Recovering/Resolving]
  - Nausea [Recovered/Resolved]
  - Pain in extremity [Recovering/Resolving]
